FAERS Safety Report 9775133 (Version 2)
Quarter: 2013Q4

REPORT INFORMATION
  Report Type: Spontaneous
  Country: DE (occurrence: DE)
  Receive Date: 20131220
  Receipt Date: 20131220
  Transmission Date: 20140711
  Serious: Yes (Other)
  Sender: FDA-Public Use
  Company Number: DE-JNJFOC-20130705557

PATIENT
  Age: 85 Year
  Sex: Female
  Weight: 62 kg

DRUGS (11)
  1. XARELTO [Suspect]
     Indication: ATRIAL FIBRILLATION
     Route: 048
     Dates: start: 20130215
  2. XARELTO [Suspect]
     Indication: CEREBROVASCULAR ACCIDENT PROPHYLAXIS
     Route: 048
     Dates: start: 20130215
  3. DIOVAN [Concomitant]
     Route: 048
  4. METOPROLOL [Concomitant]
     Route: 048
  5. TOREM [Concomitant]
     Route: 048
  6. AMARYL [Concomitant]
     Route: 048
  7. SPIRONOLACTON [Concomitant]
     Route: 048
  8. MOXONIDIN [Concomitant]
     Route: 048
  9. KALINOR (POTASSIUM BICARBONATE, POTASSIUM CITRATE) [Concomitant]
     Route: 048
  10. METHIZOL [Concomitant]
     Route: 048
  11. METFORMIN [Concomitant]
     Route: 048

REACTIONS (3)
  - Upper gastrointestinal haemorrhage [Recovered/Resolved]
  - Gastric ulcer [Recovered/Resolved]
  - Haematemesis [Recovered/Resolved]
